FAERS Safety Report 14450357 (Version 4)
Quarter: 2018Q2

REPORT INFORMATION
  Report Type: Spontaneous
  Country: US (occurrence: US)
  Receive Date: 20180129
  Receipt Date: 20180504
  Transmission Date: 20180711
  Serious: No
  Sender: FDA-Public Use
  Company Number: US-ASTRAZENECA-2018SE09804

PATIENT
  Age: 27990 Day
  Sex: Male
  Weight: 142.9 kg

DRUGS (2)
  1. BYDUREON [Suspect]
     Active Substance: EXENATIDE
     Indication: TYPE 2 DIABETES MELLITUS
     Route: 058
     Dates: start: 2013
  2. BYDUREON BCISE [Suspect]
     Active Substance: EXENATIDE
     Indication: TYPE 2 DIABETES MELLITUS
     Route: 058
     Dates: start: 2013

REACTIONS (5)
  - Device malfunction [Unknown]
  - Underdose [Unknown]
  - Pneumonia [Unknown]
  - Injection site reaction [Unknown]
  - Device leakage [Unknown]

NARRATIVE: CASE EVENT DATE: 20180112
